FAERS Safety Report 7949105 (Version 2)
Quarter: 2013Q3

REPORT INFORMATION
  Report Type: Spontaneous
  Country: SE (occurrence: SE)
  Receive Date: 20110517
  Receipt Date: 20130725
  Transmission Date: 20140515
  Serious: Yes (Hospitalization, Other)
  Sender: FDA-Public Use
  Company Number: SE-AMGEN-SWESP2011024703

PATIENT
  Age: 77 Year
  Sex: Male

DRUGS (15)
  1. ENBREL [Suspect]
     Indication: RHEUMATOID ARTHRITIS
     Dosage: 50 MG, WEEKLY
     Route: 058
     Dates: end: 201007
  2. ENBREL [Suspect]
     Dosage: 50 MG, WEEKLY
     Route: 058
     Dates: start: 2010, end: 20101114
  3. ENBREL [Suspect]
     Dosage: 50 MG, WEEKLY
     Route: 058
     Dates: end: 20111015
  4. OMEPRAZOL                          /00661201/ [Concomitant]
     Dosage: UNK
  5. FOLACIN                            /00198401/ [Concomitant]
     Dosage: UNK
  6. ALVEDON [Concomitant]
     Dosage: UNK
  7. POLYVINYL ALCOHOL [Concomitant]
     Dosage: UNK
  8. BRUFEN                             /00109201/ [Concomitant]
     Dosage: UNK
  9. TROMBYL [Concomitant]
     Dosage: UNK
  10. ATENOLOL [Concomitant]
     Dosage: UNK
  11. CALCICHEW-D3 [Concomitant]
     Dosage: UNK
  12. ASASANTIN [Concomitant]
     Dosage: UNK
  13. NOVONORM [Concomitant]
     Dosage: UNK
  14. FURIX [Concomitant]
     Dosage: UNK
  15. METHOTREXATE [Concomitant]
     Dosage: UNK

REACTIONS (10)
  - Retinal artery occlusion [Unknown]
  - Cholecystitis [Unknown]
  - Gallbladder perforation [Unknown]
  - Osteitis [Unknown]
  - Sensitisation [Unknown]
  - Dental fistula [Unknown]
  - Transient ischaemic attack [Unknown]
  - Peritonitis [Recovered/Resolved]
  - Sepsis [Recovered/Resolved]
  - Tooth infection [Unknown]
